FAERS Safety Report 4765712-9 (Version None)
Quarter: 2005Q3

REPORT INFORMATION
  Report Type: 
  Country: None (occurrence: None)
  Receive Date: 20050906
  Receipt Date: 20050823
  Transmission Date: 20060218
  Serious: Yes (Hospitalization, Other)
  Sender: FDA-Public Use
  Company Number: EWC050845540

PATIENT
  Age: 58 Year
  Sex: Female

DRUGS (5)
  1. ZYPREXA [Suspect]
     Indication: ANXIETY
     Dosage: 25 MG DAY
     Dates: start: 20050815
  2. ABILIFY [Concomitant]
  3. METOPROLOL TARTRATE [Concomitant]
  4. ATACAND [Concomitant]
  5. IMOVANE (ZOPICLONE) [Concomitant]

REACTIONS (6)
  - ANXIETY [None]
  - APPETITE DISORDER [None]
  - PANIC ATTACK [None]
  - SKIN REACTION [None]
  - SOMNOLENCE [None]
  - WEIGHT INCREASED [None]
